FAERS Safety Report 8447796-X (Version None)
Quarter: 2012Q2

REPORT INFORMATION
  Report Type: 
  Country: None (occurrence: None)
  Receive Date: 20120612
  Receipt Date: 20120606
  Transmission Date: 20120825
  Serious: Yes (Death)
  Sender: FDA-Public Use
  Company Number: 2012SP031002

PATIENT
  Age: 60 Year
  Sex: Male

DRUGS (2)
  1. SYCREST (ASENAPINE / 05706901/ ) [Suspect]
     Indication: PRODUCT USED FOR UNKNOWN INDICATION
     Dosage: 5 MG;
  2. PROZAC [Concomitant]

REACTIONS (1)
  - COMPLETED SUICIDE [None]
